FAERS Safety Report 24652709 (Version 1)
Quarter: 2024Q4

REPORT INFORMATION
  Report Type: Other
  Country: US (occurrence: US)
  Receive Date: 20241122
  Receipt Date: 20241122
  Transmission Date: 20250115
  Serious: No
  Sender: CHEMI SPA
  Company Number: US-CHEMI SPA-2165684

PATIENT
  Age: 19 Year
  Sex: Female

DRUGS (4)
  1. TEMOZOLOMIDE [Suspect]
     Active Substance: TEMOZOLOMIDE
     Indication: Glioma
  2. IFOSFAMIDE [Concomitant]
     Active Substance: IFOSFAMIDE
  3. MESNA [Concomitant]
     Active Substance: MESNA
  4. ETOPOSIDE [Concomitant]
     Active Substance: ETOPOSIDE

REACTIONS (2)
  - Off label use [Unknown]
  - Headache [Unknown]
